FAERS Safety Report 11567218 (Version 1)
Quarter: 2015Q3

REPORT INFORMATION
  Report Type: Spontaneous
  Country: US (occurrence: US)
  Receive Date: 20150916
  Receipt Date: 20150916
  Transmission Date: 20151125
  Serious: No
  Sender: FDA-Public Use
  Company Number: US-ELI_LILLY_AND_COMPANY-US200907002484

PATIENT
  Sex: Female

DRUGS (5)
  1. ANDROGEL [Concomitant]
     Active Substance: TESTOSTERONE
  2. FORTEO [Suspect]
     Active Substance: TERIPARATIDE
     Dosage: UNK, UNK
     Dates: start: 2005, end: 2007
  3. FORTEO [Suspect]
     Active Substance: TERIPARATIDE
     Dosage: UNK, UNK
     Dates: start: 200905, end: 2009
  4. FORTEO [Suspect]
     Active Substance: TERIPARATIDE
     Dates: start: 2009
  5. MULTIVITAMIN [Concomitant]
     Active Substance: VITAMINS

REACTIONS (1)
  - Scoliosis [Not Recovered/Not Resolved]
